FAERS Safety Report 17010524 (Version 1)
Quarter: 2019Q4

REPORT INFORMATION
  Report Type: Spontaneous
  Country: FR (occurrence: FR)
  Receive Date: 20191108
  Receipt Date: 20191108
  Transmission Date: 20200122
  Serious: Yes (Other)
  Sender: FDA-Public Use
  Company Number: FR-US-PROVELL PHARMACEUTICALS LLC-9015963

PATIENT
  Age: 68 Year
  Sex: Female

DRUGS (1)
  1. LEVOTHYROX NF [Suspect]
     Active Substance: LEVOTHYROXINE SODIUM
     Indication: THYROID DISORDER
     Dates: start: 2017, end: 201711

REACTIONS (27)
  - Headache [Unknown]
  - Loss of personal independence in daily activities [Unknown]
  - Vertigo [Unknown]
  - Migraine [Unknown]
  - Fatigue [Unknown]
  - Insomnia [Unknown]
  - Muscle spasms [Recovered/Resolved]
  - Depressed mood [Unknown]
  - Social avoidant behaviour [Unknown]
  - Rib fracture [Unknown]
  - Depression [Unknown]
  - Cerebellar haematoma [Unknown]
  - Blood thyroid stimulating hormone decreased [Unknown]
  - Mood swings [Unknown]
  - Agitation [Unknown]
  - Syncope [Unknown]
  - Dizziness [Unknown]
  - Malaise [Unknown]
  - Nervousness [Unknown]
  - Haemorrhage [Unknown]
  - Decreased interest [Unknown]
  - Fall [Unknown]
  - Thyroglobulin increased [Unknown]
  - Personal relationship issue [Unknown]
  - Hyperacusis [Unknown]
  - Anxiety [Unknown]
  - Cognitive disorder [Unknown]

NARRATIVE: CASE EVENT DATE: 2017
